FAERS Safety Report 23196987 (Version 1)
Quarter: 2023Q4

REPORT INFORMATION
  Report Type: Spontaneous
  Country: US (occurrence: None)
  Receive Date: 20231116
  Receipt Date: 20231116
  Transmission Date: 20240110
  Serious: Yes (Other)
  Sender: FDA-Public Use
  Company Number: None

PATIENT
  Age: 29 Year
  Sex: Male

DRUGS (3)
  1. IFOSFAMIDE [Suspect]
     Active Substance: IFOSFAMIDE
     Indication: Neurofibrosarcoma
     Dosage: FREQUENCY : DAILY;?
     Route: 041
     Dates: start: 20231114, end: 20231116
  2. DOXORUBICIN [Concomitant]
     Active Substance: DOXORUBICIN
     Dates: start: 20231114
  3. MESNA [Concomitant]
     Active Substance: MESNA
     Dates: start: 20231114, end: 20231115

REACTIONS (3)
  - Hyporesponsive to stimuli [None]
  - Dyskinesia [None]
  - Neurotoxicity [None]
